FAERS Safety Report 15766647 (Version 3)
Quarter: 2019Q1

REPORT INFORMATION
  Report Type: Spontaneous
  Country: BE (occurrence: BE)
  Receive Date: 20181227
  Receipt Date: 20190208
  Transmission Date: 20190417
  Serious: Yes (Hospitalization)
  Sender: FDA-Public Use
  Company Number: BE-PFIZER INC-2018521727

PATIENT
  Age: 72 Year
  Sex: Female

DRUGS (9)
  1. PROPIVERINE [Interacting]
     Active Substance: PROPIVERINE
     Dosage: 30 MG, 1X/DAY (IN THE EVENING)
     Route: 065
  2. LORAZEPAM. [Interacting]
     Active Substance: LORAZEPAM
     Dosage: 2.5 MG, 1X/DAY (IN THE EVENING)
  3. PARACETAMOL CODEINE [Interacting]
     Active Substance: ACETAMINOPHEN\CODEINE PHOSPHATE
     Indication: PAIN
     Dosage: 1 DF, AS NEEDED
  4. ZOLPIDEM [Interacting]
     Active Substance: ZOLPIDEM\ZOLPIDEM TARTRATE
     Dosage: 10 MG, 1X/DAY (IN THE EVENING)
  5. MIRTAZAPINE. [Interacting]
     Active Substance: MIRTAZAPINE
     Dosage: 45 MG, 1X/DAY (IN THE EVENING)
  6. ARIPIPRAZOLE. [Interacting]
     Active Substance: ARIPIPRAZOLE
     Dosage: 5 MG, 1X/DAY (IN THE MORNING)
     Route: 065
  7. VENLAFAXINE HCL [Suspect]
     Active Substance: VENLAFAXINE HYDROCHLORIDE
     Dosage: 150 MG, 1X/DAY (IN THE MORNING)
     Route: 065
  8. ATORVASTATIN CALCIUM. [Interacting]
     Active Substance: ATORVASTATIN CALCIUM
     Dosage: 20 MG, 1X/DAY (IN THE EVENING)
  9. SUPRADYN VITAL 50+ [ASCORBIC ACID;BIOTIN;CALCIUM CARBONATE;CALCIUM PAN [Interacting]
     Active Substance: MINERALS\VITAMINS
     Indication: SUPPLEMENTATION THERAPY
     Dosage: 1 DF, 1X/DAY (IN THE MORNING)
     Route: 065

REACTIONS (3)
  - Drug interaction [Unknown]
  - Fall [Unknown]
  - Gait disturbance [Unknown]
